FAERS Safety Report 4353511-1 (Version None)
Quarter: 2004Q2

REPORT INFORMATION
  Report Type: 
  Country: None (occurrence: None)
  Receive Date: 20040505
  Receipt Date: 20040426
  Transmission Date: 20050107
  Serious: Yes (Hospitalization)
  Sender: FDA-Public Use
  Company Number: DE-ROCHE-365463

PATIENT
  Age: 65 Year
  Sex: Female

DRUGS (17)
  1. MYCOPHENOLATE MOFETIL [Suspect]
     Route: 065
     Dates: start: 20040415, end: 20040420
  2. MYCOPHENOLATE MOFETIL [Suspect]
     Dosage: LOWERED IN REPONSE TO ISCHAEMIC COLITIS.
     Route: 065
     Dates: start: 20040421
  3. CYCLOSPORINE [Suspect]
     Dosage: ADJUSTED TO REACH PREDEFINED TARGET LEVELS.
     Route: 065
     Dates: start: 20040415, end: 20040416
  4. CYCLOSPORINE [Suspect]
     Route: 065
     Dates: start: 20040417, end: 20040418
  5. CYCLOSPORINE [Suspect]
     Route: 065
     Dates: start: 20040419
  6. PREDNISOLONE [Suspect]
     Dosage: TAPER ACCORDING TO LOCAL PROTOCOL.
     Route: 065
     Dates: start: 20040415, end: 20040415
  7. PREDNISOLONE [Suspect]
     Route: 065
     Dates: start: 20040416, end: 20040416
  8. PREDNISOLONE [Suspect]
     Route: 065
     Dates: start: 20040417, end: 20040418
  9. PREDNISOLONE [Suspect]
     Route: 065
     Dates: start: 20040419, end: 20040419
  10. PREDNISOLONE [Suspect]
     Route: 065
     Dates: start: 20040420, end: 20040420
  11. PREDNISOLONE [Suspect]
     Route: 065
     Dates: start: 20040421, end: 20040421
  12. PREDNISOLONE [Suspect]
     Route: 065
     Dates: start: 20040422
  13. METOPROLOL SUCCINATE [Concomitant]
     Dosage: ANTI-HYPERTENSIVE.
     Dates: end: 20040415
  14. FUROSEMIDE [Concomitant]
     Dosage: ANTI-HYPERTENSIVE.
  15. EPOETIN ALFA [Concomitant]
     Dosage: ANTI-ANAEMIC.
     Dates: end: 20040415
  16. CEFOTIAM HYDROCHLORIDE [Concomitant]
     Dosage: ANTI-BACTERIAL.
     Dates: start: 20040415, end: 20040418
  17. FELODIPIN [Concomitant]
     Dosage: ANTI-HYPERTENSIVE.
     Dates: start: 20040422

REACTIONS (6)
  - ACUTE ABDOMEN [None]
  - BACTERIAL INFECTION [None]
  - COLITIS ISCHAEMIC [None]
  - ILEUS PARALYTIC [None]
  - PERITONITIS [None]
  - POST PROCEDURAL COMPLICATION [None]
